FAERS Safety Report 5660496-4 (Version None)
Quarter: 2008Q1

REPORT INFORMATION
  Report Type: 
  Country: None (occurrence: None)
  Receive Date: 20080214
  Receipt Date: 20070914
  Transmission Date: 20080703
  Serious: Yes (Disabling)
  Sender: FDA-Public Use
  Company Number: ALK_00392_2007

PATIENT
  Sex: Female

DRUGS (5)
  1. VIVITROL [Suspect]
     Indication: ALCOHOLISM
     Dosage: (380 MG 1X/MONTH INTRAMUSCULAR)
     Route: 030
     Dates: start: 20070613, end: 20071011
  2. WELLBUTRIN [Concomitant]
  3. SEROQUEL [Concomitant]
  4. BUSPAR [Concomitant]
  5. CAMPRAL [Concomitant]

REACTIONS (3)
  - INJECTION SITE INDURATION [None]
  - INJECTION SITE PAIN [None]
  - INJECTION SITE REACTION [None]
